FAERS Safety Report 12314156 (Version 2)
Quarter: 2016Q2

REPORT INFORMATION
  Report Type: Report from Study
  Country: US (occurrence: US)
  Receive Date: 20160428
  Receipt Date: 20160504
  Transmission Date: 20160815
  Serious: Yes (Hospitalization, Other)
  Sender: FDA-Public Use
  Company Number: US-ASTELLAS-2016US016176

PATIENT
  Age: 65 Year
  Sex: Male

DRUGS (6)
  1. ERLOTINIB [Suspect]
     Active Substance: ERLOTINIB
     Indication: NON-SMALL CELL LUNG CANCER
     Route: 065
     Dates: start: 201503
  2. ERLOTINIB [Suspect]
     Active Substance: ERLOTINIB
     Indication: LUNG ADENOCARCINOMA
     Route: 065
  3. AMLODIPINE [Concomitant]
     Active Substance: AMLODIPINE BESYLATE
     Indication: HYPERTENSION
     Route: 048
     Dates: start: 201601
  4. ERLOTINIB [Suspect]
     Active Substance: ERLOTINIB
     Route: 065
     Dates: start: 201502
  5. AFATINIB [Suspect]
     Active Substance: AFATINIB
     Indication: PRODUCT USED FOR UNKNOWN INDICATION
     Dosage: UNK UNK, UNKNOWN FREQ.
     Route: 065
  6. SYNTHROID [Concomitant]
     Active Substance: LEVOTHYROXINE SODIUM
     Indication: PRODUCT USED FOR UNKNOWN INDICATION
     Route: 048
     Dates: start: 201502

REACTIONS (14)
  - Neurological symptom [Not Recovered/Not Resolved]
  - Drug dose omission [Unknown]
  - Weight decreased [Unknown]
  - Headache [Not Recovered/Not Resolved]
  - Hallucination, visual [Not Recovered/Not Resolved]
  - Head discomfort [Not Recovered/Not Resolved]
  - Seizure [Not Recovered/Not Resolved]
  - Nausea [Not Recovered/Not Resolved]
  - Transient ischaemic attack [Unknown]
  - Somnolence [Unknown]
  - Paraesthesia [Not Recovered/Not Resolved]
  - Tinnitus [Not Recovered/Not Resolved]
  - Vomiting [Recovering/Resolving]
  - Diarrhoea [Unknown]

NARRATIVE: CASE EVENT DATE: 20160226
